FAERS Safety Report 6472498-9 (Version None)
Quarter: 2009Q4

REPORT INFORMATION
  Report Type: 
  Country: None (occurrence: None)
  Receive Date: 20091203
  Receipt Date: 20090107
  Transmission Date: 20100525
  Serious: No
  Sender: FDA-Public Use
  Company Number: US-AMGEN-KDL322725

PATIENT
  Sex: Male

DRUGS (3)
  1. ENBREL [Suspect]
     Indication: PSORIASIS
     Route: 058
     Dates: start: 20081020
  2. ULTRAVATE [Concomitant]
  3. ALLOPURINOL [Concomitant]
     Dates: start: 20000101

REACTIONS (5)
  - DEHYDRATION [None]
  - DIZZINESS POSTURAL [None]
  - HYPOTENSION [None]
  - PSORIASIS [None]
  - UPPER RESPIRATORY TRACT INFECTION [None]
